FAERS Safety Report 7591000-1 (Version None)
Quarter: 2011Q3

REPORT INFORMATION
  Report Type: 
  Country: None (occurrence: None)
  Receive Date: 20110705
  Receipt Date: 20110627
  Transmission Date: 20111222
  Serious: Yes (Other)
  Sender: FDA-Public Use
  Company Number: GB-PFIZER INC-2011096503

PATIENT
  Age: 73 Year
  Sex: Female
  Weight: 80 kg

DRUGS (2)
  1. SUTENT [Suspect]
     Indication: METASTASIS
  2. SUTENT [Suspect]
     Indication: METASTATIC RENAL CELL CARCINOMA
     Dosage: 37.5 MG, 4 WEEKS ON, 2 WEEKS OFF
     Route: 048
     Dates: start: 20101007

REACTIONS (10)
  - VOMITING [None]
  - ABDOMINAL PAIN [None]
  - MESENTERIC ARTERIOSCLEROSIS [None]
  - GASTROOESOPHAGEAL REFLUX DISEASE [None]
  - LETHARGY [None]
  - ORBITAL OEDEMA [None]
  - DIARRHOEA [None]
  - NAUSEA [None]
  - CONSTIPATION [None]
  - ACUTE ABDOMEN [None]
